FAERS Safety Report 4878474-1 (Version None)
Quarter: 2006Q1

REPORT INFORMATION
  Report Type: 
  Country: None (occurrence: None)
  Receive Date: 20060109
  Receipt Date: 20060109
  Transmission Date: 20060701
  Serious: Yes (Hospitalization)
  Sender: FDA-Public Use
  Company Number: None

PATIENT
  Age: 60 Year
  Sex: Male

DRUGS (1)
  1. AUGMENTIN '500' [Suspect]
     Indication: PROPHYLAXIS
     Dosage: 500 MG PO TID
     Route: 048

REACTIONS (2)
  - POST PROCEDURAL NAUSEA [None]
  - POST PROCEDURAL VOMITING [None]
